FAERS Safety Report 11107194 (Version 3)
Quarter: 2015Q2

REPORT INFORMATION
  Report Type: Spontaneous
  Country: NO (occurrence: NO)
  Receive Date: 20150512
  Receipt Date: 20150527
  Transmission Date: 20150821
  Serious: Yes (Hospitalization)
  Sender: FDA-Public Use
  Company Number: NO-HOSPIRA-2738352

PATIENT
  Age: 59 Year
  Sex: Female

DRUGS (18)
  1. DUPHALAC [Concomitant]
     Active Substance: LACTULOSE
     Indication: CONSTIPATION
     Dosage: 10 MG,QD
     Route: 048
     Dates: start: 20141229
  2. LAXOBERAL [Concomitant]
     Active Substance: SODIUM PICOSULFATE
     Indication: CONSTIPATION
     Dosage: 10 GTT,QD
     Route: 048
     Dates: start: 20141229
  3. METOCLOPRAMID                      /00041901/ [Concomitant]
     Indication: NAUSEA
     Dosage: 10 MG,QD
     Route: 048
     Dates: start: 20141229
  4. ONDANSETRON [Concomitant]
     Active Substance: ONDANSETRON
     Indication: NAUSEA
     Dosage: 8 MG,QD
     Route: 048
     Dates: start: 20141229
  5. EMEND [Concomitant]
     Active Substance: APREPITANT
     Indication: NAUSEA
     Dosage: 125 MG,UNK
     Route: 048
     Dates: start: 20141229
  6. PEGFILGRASTIM [Concomitant]
     Active Substance: PEGFILGRASTIM
     Indication: NEUTROPENIA
     Dosage: 6 MG,QD
     Dates: start: 20141230
  7. FLUOROURACIL. [Suspect]
     Active Substance: FLUOROURACIL
     Indication: HER-2 POSITIVE BREAST CANCER
     Dosage: FOR 12 WEEKS (CYCLE 1-4)(AS PER PROTOCOL)
     Route: 042
     Dates: start: 20141229
  8. CYCLOPHOSPHAMIDE. [Suspect]
     Active Substance: CYCLOPHOSPHAMIDE
     Indication: HER-2 POSITIVE BREAST CANCER
     Dosage: FOR 12 WEEKS(CYCLE 1-4)(AS PER PROTOCOL)
     Route: 042
     Dates: start: 20141229
  9. PERTUZUMAB [Suspect]
     Active Substance: PERTUZUMAB
     Indication: HER-2 POSITIVE BREAST CANCER
     Route: 042
     Dates: start: 20150323
  10. EPIRUBICIN HYDROCHLORIDE. [Suspect]
     Active Substance: EPIRUBICIN HYDROCHLORIDE
     Indication: HER-2 POSITIVE BREAST CANCER
     Dosage: FOR 12 WEEKS(CYCLE 1-4)(AS PER PROTOCOL)
     Route: 042
     Dates: start: 20141229
  11. NASONEX [Concomitant]
     Active Substance: MOMETASONE FUROATE
     Indication: SINUSITIS
     Dosage: 100 UG,QD
     Route: 065
     Dates: start: 20150107
  12. OTRIVIN [Concomitant]
     Active Substance: XYLOMETAZOLINE
     Indication: SINUSITIS
     Dosage: 1 UNK,UNK
     Route: 006
     Dates: start: 20150107
  13. ABILIFY [Concomitant]
     Active Substance: ARIPIPRAZOLE
     Indication: PSYCHOTIC DISORDER
     Dosage: 10 MG,UNK
     Route: 048
  14. DEXAMETHASONE. [Concomitant]
     Active Substance: DEXAMETHASONE
     Indication: NAUSEA
     Dosage: 8 MG,QD
     Route: 048
     Dates: start: 20141229
  15. DERMOVATE [Concomitant]
     Active Substance: CLOBETASOL
     Indication: PSORIASIS
     Dosage: 0.05%,UNK
     Route: 062
  16. KLARICID                           /00984601/ [Concomitant]
     Active Substance: CLARITHROMYCIN
     Indication: SINUSITIS
     Dosage: 500 MG,QD
     Route: 048
     Dates: start: 20150109
  17. TRASTUZUMAB [Suspect]
     Active Substance: TRASTUZUMAB
     Indication: HER-2 POSITIVE BREAST CANCER
     Route: 042
     Dates: start: 20150323
  18. SOMAC [Concomitant]
     Active Substance: PANTOPRAZOLE SODIUM
     Indication: DYSPEPSIA
     Dosage: 40 MG,QD
     Route: 048
     Dates: start: 20150102

REACTIONS (4)
  - Swelling face [Unknown]
  - Febrile neutropenia [Recovered/Resolved]
  - Sinusitis [Unknown]
  - Pyrexia [Unknown]

NARRATIVE: CASE EVENT DATE: 20150107
